FAERS Safety Report 7495174-2 (Version None)
Quarter: 2011Q2

REPORT INFORMATION
  Report Type: 
  Country: None (occurrence: None)
  Receive Date: 20110520
  Receipt Date: 20110511
  Transmission Date: 20111010
  Serious: Yes (Other)
  Sender: FDA-Public Use
  Company Number: FR-GILEAD-2011-0039410

PATIENT
  Age: 41 Year
  Sex: Male

DRUGS (4)
  1. ATAZANAVIR [Concomitant]
     Indication: HIV INFECTION
     Dates: start: 20030101
  2. EMTRIVA [Concomitant]
     Indication: HIV INFECTION
     Dates: start: 20030101
  3. VIREAD [Suspect]
     Indication: HIV INFECTION
     Dates: start: 20030101, end: 20081030
  4. RITONAVIR [Concomitant]
     Indication: HIV INFECTION
     Dates: start: 20030101

REACTIONS (3)
  - OSTEOMALACIA [None]
  - MULTIPLE FRACTURES [None]
  - RENAL TUBULAR DISORDER [None]
